FAERS Safety Report 5731933-1 (Version None)
Quarter: 2008Q2

REPORT INFORMATION
  Report Type: 
  Country: None (occurrence: None)
  Receive Date: 20080508
  Receipt Date: 20080430
  Transmission Date: 20081010
  Serious: Yes (Hospitalization, Disabling)
  Sender: FDA-Public Use
  Company Number: US-MERCK-0610USA13976

PATIENT
  Age: 77 Year
  Sex: Female
  Weight: 55 kg

DRUGS (5)
  1. FOSAMAX [Suspect]
     Indication: OSTEOPOROSIS
     Route: 048
     Dates: start: 20020128, end: 20040603
  2. FOSAMAX [Suspect]
     Route: 048
     Dates: start: 19980101, end: 20011204
  3. FOSAMAX [Suspect]
     Route: 048
  4. COZAAR [Concomitant]
     Indication: BLOOD PRESSURE INCREASED
     Route: 048
     Dates: start: 20000201
  5. SINGULAIR [Concomitant]
     Indication: HYPERSENSITIVITY
     Route: 048
     Dates: start: 20010401, end: 20040501

REACTIONS (25)
  - ANXIETY [None]
  - BLOOD CHOLESTEROL INCREASED [None]
  - CELLULITIS [None]
  - CONSTIPATION [None]
  - CYST [None]
  - DIVERTICULUM [None]
  - FALL [None]
  - FEMUR FRACTURE [None]
  - FISTULA [None]
  - HAEMORRHOIDAL HAEMORRHAGE [None]
  - HAEMORRHOIDS [None]
  - HYPOKALAEMIA [None]
  - INFLUENZA [None]
  - MEDICAL DEVICE COMPLICATION [None]
  - MITRAL VALVE DISEASE [None]
  - NASOPHARYNGITIS [None]
  - OSTEOARTHRITIS [None]
  - OSTEONECROSIS [None]
  - PALPITATIONS [None]
  - PERIODONTAL DISEASE [None]
  - PERIODONTITIS [None]
  - RESORPTION BONE INCREASED [None]
  - ROAD TRAFFIC ACCIDENT [None]
  - TYPE 2 DIABETES MELLITUS [None]
  - URINARY TRACT INFECTION [None]
